FAERS Safety Report 18914658 (Version 1)
Quarter: 2021Q1

REPORT INFORMATION
  Report Type: Spontaneous
  Country: US (occurrence: US)
  Receive Date: 20210219
  Receipt Date: 20210219
  Transmission Date: 20210420
  Serious: No
  Sender: FDA-Public Use
  Company Number: US-BEH-2021128619

PATIENT
  Sex: Female

DRUGS (1)
  1. HIZENTRA [Suspect]
     Active Substance: HUMAN IMMUNOGLOBULIN G
     Indication: IMMUNODEFICIENCY COMMON VARIABLE
     Dosage: 13 GRAM, QOW
     Route: 058
     Dates: start: 202101

REACTIONS (2)
  - Infusion site erythema [Recovered/Resolved]
  - Malabsorption from administration site [Recovered/Resolved]
